FAERS Safety Report 7766986-2 (Version None)
Quarter: 2011Q3

REPORT INFORMATION
  Report Type: 
  Country: None (occurrence: None)
  Receive Date: 20110922
  Receipt Date: 20110916
  Transmission Date: 20111222
  Serious: No
  Sender: FDA-Public Use
  Company Number: US-PFIZER INC-2011222886

PATIENT
  Sex: Female

DRUGS (1)
  1. RELISTOR [Suspect]
     Indication: CONSTIPATION
     Dosage: UNK
     Route: 058
     Dates: start: 20110916

REACTIONS (1)
  - ABDOMINAL PAIN [None]
